FAERS Safety Report 4679110-X (Version None)
Quarter: 2005Q2

REPORT INFORMATION
  Report Type: 
  Country: None (occurrence: None)
  Receive Date: 20050527
  Receipt Date: 20050311
  Transmission Date: 20051028
  Serious: No
  Sender: FDA-Public Use
  Company Number: PHEH2005US02910

PATIENT

DRUGS (1)
  1. ZELNORM [Suspect]
     Indication: IRRITABLE BOWEL SYNDROME
     Dosage: ORAL
     Route: 048

REACTIONS (2)
  - VISUAL ACUITY REDUCED [None]
  - VISUAL DISTURBANCE [None]
